FAERS Safety Report 20030939 (Version 1)
Quarter: 2021Q4

REPORT INFORMATION
  Report Type: Spontaneous
  Country: US (occurrence: US)
  Receive Date: 20211103
  Receipt Date: 20211103
  Transmission Date: 20220303
  Serious: Yes (Hospitalization, Other)
  Sender: FDA-Public Use
  Company Number: US-BAYER-2021A237329

PATIENT
  Sex: Male

DRUGS (4)
  1. STIVARGA [Suspect]
     Active Substance: REGORAFENIB
     Indication: Product used for unknown indication
     Dosage: UNK
     Route: 048
  2. STIVARGA [Suspect]
     Active Substance: REGORAFENIB
     Indication: Product used for unknown indication
     Dosage: UNK
  3. LONSURF [Suspect]
     Active Substance: TIPIRACIL HYDROCHLORIDE\TRIFLURIDINE
     Indication: Colorectal cancer metastatic
     Dosage: 80 MG, BID
     Route: 048
     Dates: start: 20210628
  4. XELODA [Concomitant]
     Active Substance: CAPECITABINE
     Dosage: UNK

REACTIONS (5)
  - Malignant pleural effusion [Unknown]
  - Metastases to lung [Unknown]
  - Intra-abdominal fluid collection [Unknown]
  - Nausea [Unknown]
  - Fatigue [Unknown]
